FAERS Safety Report 18763735 (Version 1)
Quarter: 2021Q1

REPORT INFORMATION
  Report Type: Spontaneous
  Country: US (occurrence: US)
  Receive Date: 20210120
  Receipt Date: 20210120
  Transmission Date: 20210419
  Serious: No
  Sender: FDA-Public Use
  Company Number: US-JNJFOC-20210113332

PATIENT
  Age: 27 Year
  Sex: Male
  Weight: 68.1 kg

DRUGS (1)
  1. MENS ROGAINE EXTRA STRENGTH [Suspect]
     Active Substance: MINOXIDIL
     Indication: ANDROGENETIC ALOPECIA
     Dosage: DOSE: ABOUT A CAPFUL?PRODUCT STOP DATE?MID DECEMBER OF 2020
     Route: 061
     Dates: start: 202008

REACTIONS (1)
  - Overdose [Unknown]

NARRATIVE: CASE EVENT DATE: 202008
